FAERS Safety Report 13831029 (Version 1)
Quarter: 2017Q3

REPORT INFORMATION
  Report Type: Report from Study
  Country: US (occurrence: US)
  Receive Date: 20170803
  Receipt Date: 20170803
  Transmission Date: 20171127
  Serious: Yes (Other)
  Sender: FDA-Public Use
  Company Number: US-GILEAD-2017-0286254

PATIENT
  Age: 72 Year
  Sex: Female

DRUGS (1)
  1. RANOLAZINE. [Suspect]
     Active Substance: RANOLAZINE
     Indication: CHEST PAIN
     Dosage: 500 MG, UNK
     Route: 048
     Dates: start: 20170627

REACTIONS (2)
  - Coronary artery occlusion [Not Recovered/Not Resolved]
  - Disability [Not Recovered/Not Resolved]
